FAERS Safety Report 20012234 (Version 1)
Quarter: 2021Q4

REPORT INFORMATION
  Report Type: Spontaneous
  Country: US (occurrence: US)
  Receive Date: 20211029
  Receipt Date: 20211029
  Transmission Date: 20220303
  Serious: Yes (Life-Threatening, Other)
  Sender: FDA-Public Use
  Company Number: US-MALLINCKRODT-T202104854

PATIENT
  Age: 47 Year
  Sex: Male

DRUGS (4)
  1. INOMAX [Suspect]
     Active Substance: NITRIC OXIDE
     Indication: COVID-19
     Dosage: UNK (VIA INHALATION)
     Route: 055
  2. INOMAX [Suspect]
     Active Substance: NITRIC OXIDE
     Indication: Acute respiratory distress syndrome
  3. REMDESIVIR [Suspect]
     Active Substance: REMDESIVIR
     Indication: COVID-19
     Dosage: UNK
     Route: 065
  4. REMDESIVIR [Suspect]
     Active Substance: REMDESIVIR
     Indication: Acute respiratory distress syndrome

REACTIONS (11)
  - Respiratory failure [Recovering/Resolving]
  - Pneumonia [Recovering/Resolving]
  - Pneumothorax [Recovering/Resolving]
  - Endocarditis [Unknown]
  - Bacteraemia [Unknown]
  - Haematochezia [Unknown]
  - Hypoxia [Recovering/Resolving]
  - Condition aggravated [Recovering/Resolving]
  - Therapy non-responder [Recovering/Resolving]
  - Product use in unapproved indication [Unknown]
  - Product use issue [Unknown]
